FAERS Safety Report 9846670 (Version 1)
Quarter: 2013Q4

REPORT INFORMATION
  Report Type: Spontaneous
  Country: US (occurrence: None)
  Receive Date: 20131224
  Receipt Date: 20131224
  Transmission Date: 20140711
  Serious: Yes (Other)
  Sender: FDA-Public Use
  Company Number: PHEH2013US021165

PATIENT
  Age: 41 Year
  Sex: Female
  Weight: 75.7 kg

DRUGS (2)
  1. GILENYA (FINGOLIMOD) CAPSULE [Suspect]
     Indication: RELAPSING-REMITTING MULTIPLE SCLEROSIS
     Route: 048
     Dates: start: 20130412, end: 20131004
  2. WELLBUTRIN(BUPROPION HYDROCHLORIDE) [Concomitant]

REACTIONS (1)
  - Genital herpes [None]
